FAERS Safety Report 25516194 (Version 1)
Quarter: 2025Q3

REPORT INFORMATION
  Report Type: Spontaneous
  Country: US (occurrence: US)
  Receive Date: 20250704
  Receipt Date: 20250704
  Transmission Date: 20251021
  Serious: No
  Sender: RADIUS PHARM
  Company Number: US-RADIUS HEALTH INC.-2025US001647

PATIENT
  Age: 60 Year
  Sex: Female

DRUGS (1)
  1. TYMLOS [Suspect]
     Active Substance: ABALOPARATIDE
     Indication: Osteoporosis postmenopausal
     Route: 058
     Dates: start: 20250220

REACTIONS (5)
  - Swelling face [Recovering/Resolving]
  - Erythema [Recovering/Resolving]
  - Headache [Unknown]
  - Fatigue [Unknown]
  - Head discomfort [Recovering/Resolving]

NARRATIVE: CASE EVENT DATE: 20250201
